FAERS Safety Report 14941650 (Version 5)
Quarter: 2020Q1

REPORT INFORMATION
  Report Type: Report from Study
  Country: US (occurrence: US)
  Receive Date: 20180526
  Receipt Date: 20200312
  Transmission Date: 20200409
  Serious: Yes (Other)
  Sender: FDA-Public Use
  Company Number: PHEH2018US020551

PATIENT
  Age: 51 Year
  Sex: Female

DRUGS (1)
  1. GILENYA [Suspect]
     Active Substance: FINGOLIMOD HYDROCHLORIDE
     Indication: MULTIPLE SCLEROSIS
     Dosage: 0.5 MG, QD
     Route: 048
     Dates: start: 20180412, end: 20200125

REACTIONS (4)
  - Seasonal allergy [Recovering/Resolving]
  - Nasopharyngitis [Recovering/Resolving]
  - Multiple sclerosis [Unknown]
  - Movement disorder [Unknown]

NARRATIVE: CASE EVENT DATE: 20180424
